FAERS Safety Report 8591430-5 (Version None)
Quarter: 2012Q3

REPORT INFORMATION
  Report Type: 
  Country: None (occurrence: None)
  Receive Date: 20120801
  Receipt Date: 20120720
  Transmission Date: 20120928
  Serious: Yes (Other)
  Sender: FDA-Public Use
  Company Number: 2012AP002260

PATIENT
  Age: 41 Year
  Sex: Female

DRUGS (2)
  1. DIVALPROEX SODIUM [Suspect]
     Indication: BIPOLAR DISORDER
     Dosage: 1000 MG;QD  : 1250 MG;QD
  2. OLANZAPINE [Suspect]
     Indication: MANIA
     Dosage: 10 MG

REACTIONS (3)
  - MANIA [None]
  - HYPERAMMONAEMIC ENCEPHALOPATHY [None]
  - DRUG INTERACTION [None]
